FAERS Safety Report 16250304 (Version 2)
Quarter: 2019Q2

REPORT INFORMATION
  Report Type: Spontaneous
  Country: GB (occurrence: GB)
  Receive Date: 20190429
  Receipt Date: 20190506
  Transmission Date: 20190711
  Serious: Yes (Death, Hospitalization, Other)
  Sender: FDA-Public Use
  Company Number: GB-PFIZER INC-2019178135

PATIENT
  Age: 50 Year
  Sex: Male

DRUGS (4)
  1. CIPROFLOXACIN. [Suspect]
     Active Substance: CIPROFLOXACIN
     Dosage: UNK
  2. SOLIRIS [Suspect]
     Active Substance: ECULIZUMAB
     Dosage: 1200 MG, Q2W
     Route: 042
  3. SOLIRIS [Suspect]
     Active Substance: ECULIZUMAB
     Indication: ATYPICAL HAEMOLYTIC URAEMIC SYNDROME
     Dosage: 900 MG, QW
     Route: 042
  4. PENICILLIN-V [PHENOXYMETHYLPENICILLIN] [Suspect]
     Active Substance: PENICILLIN V
     Dosage: UNK

REACTIONS (4)
  - Device related infection [Fatal]
  - Urinary tract infection fungal [Fatal]
  - Pneumonia [Fatal]
  - Clostridium difficile colitis [Fatal]
